FAERS Safety Report 7115200-X (Version None)
Quarter: 2010Q4

REPORT INFORMATION
  Report Type: 
  Country: None (occurrence: None)
  Receive Date: 20101116
  Receipt Date: 20101116
  Transmission Date: 20110411
  Serious: Yes (Hospitalization)
  Sender: FDA-Public Use
  Company Number: None

PATIENT
  Age: 75 Year
  Sex: Male
  Weight: 125.2 kg

DRUGS (3)
  1. LISINOPRIL [Suspect]
     Indication: HYPERTENSION
     Dosage: 40 MG EVERY DAY PO
     Route: 048
     Dates: start: 19990928, end: 20100730
  2. AMOXICILLIN/CLAVULANATE [Suspect]
     Indication: PNEUMONIA
     Dosage: 500/125 MG TID PO
     Route: 048
     Dates: start: 20100726, end: 20100730
  3. AMOXICILLIN/CLAVULANATE [Suspect]
     Indication: RESPIRATORY TRACT INFECTION
     Dosage: 500/125 MG TID PO
     Route: 048
     Dates: start: 20100726, end: 20100730

REACTIONS (1)
  - ANGIOEDEMA [None]
